FAERS Safety Report 5812519-7 (Version None)
Quarter: 2008Q3

REPORT INFORMATION
  Report Type: 
  Country: None (occurrence: None)
  Receive Date: 20080714
  Receipt Date: 20080714
  Transmission Date: 20090109
  Serious: Yes (Life-Threatening, Hospitalization)
  Sender: FDA-Public Use
  Company Number: None

PATIENT
  Age: 75 Year
  Sex: Male
  Weight: 119 kg

DRUGS (2)
  1. PROPOFOL [Suspect]
     Indication: CARDIAC FAILURE CONGESTIVE
     Dosage: 5MCG/KG/MIN TITRATE CONTINUOUS IV DRIP
     Route: 041
     Dates: start: 20080619, end: 20080625
  2. PROPOFOL [Suspect]
     Indication: SEDATION
     Dosage: 5MCG/KG/MIN TITRATE CONTINUOUS IV DRIP
     Route: 041
     Dates: start: 20080619, end: 20080625

REACTIONS (1)
  - HYPOTENSION [None]
